FAERS Safety Report 14015188 (Version 1)
Quarter: 2017Q3

REPORT INFORMATION
  Report Type: Spontaneous
  Country: GB (occurrence: GB)
  Receive Date: 20170927
  Receipt Date: 20170927
  Transmission Date: 20171128
  Serious: Yes (Other)
  Sender: FDA-Public Use
  Company Number: GB-AUROBINDO-AUR-APL-2017-40812

PATIENT
  Age: 85 Year
  Sex: Male

DRUGS (1)
  1. FINASTERIDE 5MG [Suspect]
     Active Substance: FINASTERIDE
     Indication: BENIGN PROSTATIC HYPERPLASIA
     Dosage: 5 MG, ONCE A DAY
     Route: 065
     Dates: start: 2009

REACTIONS (3)
  - Gynaecomastia [Not Recovered/Not Resolved]
  - Fat tissue increased [Not Recovered/Not Resolved]
  - Penile size reduced [Not Recovered/Not Resolved]
